FAERS Safety Report 7602474-1 (Version None)
Quarter: 2011Q3

REPORT INFORMATION
  Report Type: 
  Country: None (occurrence: None)
  Receive Date: 20110712
  Receipt Date: 20110630
  Transmission Date: 20111222
  Serious: No
  Sender: FDA-Public Use
  Company Number: US-BIOGENIDEC-2011BI024389

PATIENT
  Age: 40 Year
  Sex: Female

DRUGS (1)
  1. AVONEX [Suspect]
     Indication: MULTIPLE SCLEROSIS
     Route: 030
     Dates: start: 20110601

REACTIONS (14)
  - DYSKINESIA [None]
  - FATIGUE [None]
  - LOSS OF CONTROL OF LEGS [None]
  - PYREXIA [None]
  - BURNING SENSATION [None]
  - FEELING HOT [None]
  - APHASIA [None]
  - PAIN [None]
  - ARTHRALGIA [None]
  - BALANCE DISORDER [None]
  - HYPOTONIA [None]
  - ABASIA [None]
  - DYSSTASIA [None]
  - FALL [None]
